FAERS Safety Report 4835590-8 (Version None)
Quarter: 2005Q4

REPORT INFORMATION
  Report Type: 
  Country: None (occurrence: None)
  Receive Date: 20051121
  Receipt Date: 20051107
  Transmission Date: 20060501
  Serious: Yes (Hospitalization, Other)
  Sender: FDA-Public Use
  Company Number: 2005127248

PATIENT
  Age: 51 Year
  Sex: Male
  Weight: 90.7194 kg

DRUGS (3)
  1. COOL MINT LISTERINE (MENTHOL, METHYL SALICYLATE, EUCALYPTOL, THYMOL) [Suspect]
     Indication: DENTAL DISORDER PROPHYLAXIS
     Dosage: HALF A CUPFUL 1-2 TIMES A DAY ORAL
     Route: 048
  2. RISPERIDONE [Concomitant]
  3. ESCITALOPRAM(ESCITALOPRAM) [Concomitant]

REACTIONS (15)
  - ABDOMINAL PAIN [None]
  - ANOREXIA [None]
  - ASTHENIA [None]
  - DIARRHOEA [None]
  - DIZZINESS POSTURAL [None]
  - GASTROINTESTINAL PAIN [None]
  - GINGIVAL BLEEDING [None]
  - GINGIVAL PAIN [None]
  - IMPAIRED DRIVING ABILITY [None]
  - MALAISE [None]
  - NAUSEA [None]
  - PAIN [None]
  - SINUS HEADACHE [None]
  - TOOTHACHE [None]
  - VISION BLURRED [None]
